FAERS Safety Report 12183731 (Version 1)
Quarter: 2016Q1

REPORT INFORMATION
  Report Type: Spontaneous
  Country: US (occurrence: None)
  Receive Date: 20160315
  Receipt Date: 20160315
  Transmission Date: 20160526
  Serious: No
  Sender: FDA-Public Use
  Company Number: None

PATIENT
  Age: 39 Year
  Sex: Female

DRUGS (1)
  1. VALACYCLOVIR 1 GRAM CAMBER [Suspect]
     Active Substance: VALACYCLOVIR HYDROCHLORIDE
     Route: 048
     Dates: start: 20160314

REACTIONS (3)
  - Drug ineffective [None]
  - Dysgeusia [None]
  - Condition aggravated [None]

NARRATIVE: CASE EVENT DATE: 20160314
